FAERS Safety Report 5140345-3 (Version None)
Quarter: 2006Q4

REPORT INFORMATION
  Report Type: 
  Country: None (occurrence: None)
  Receive Date: 20061031
  Receipt Date: 20061017
  Transmission Date: 20070319
  Serious: Yes (Death)
  Sender: FDA-Public Use
  Company Number: 2006AP04935

PATIENT
  Age: 72 Year
  Sex: Male

DRUGS (12)
  1. TENORMIN [Suspect]
     Indication: HYPERTENSION
     Route: 048
     Dates: start: 20050112, end: 20050405
  2. TENORMIN [Suspect]
     Route: 048
     Dates: start: 20050406
  3. CONIEL [Concomitant]
     Route: 048
  4. SELBEX [Concomitant]
     Route: 048
  5. CEROCRAL [Concomitant]
     Route: 048
  6. DEPAS [Concomitant]
     Route: 048
  7. HEMOLINGUAL [Concomitant]
  8. KAMAG G [Concomitant]
     Route: 048
  9. PURSENNID [Concomitant]
     Route: 048
  10. NITOROL R [Concomitant]
     Route: 048
  11. NERIPROCT [Concomitant]
     Route: 054
  12. LASIX [Concomitant]
     Route: 065
     Dates: start: 20060925

REACTIONS (3)
  - DEATH [None]
  - OEDEMA [None]
  - PLEURAL EFFUSION [None]
